FAERS Safety Report 17441574 (Version 1)
Quarter: 2020Q1

REPORT INFORMATION
  Report Type: Spontaneous
  Country: US (occurrence: US)
  Receive Date: 20200220
  Receipt Date: 20200220
  Transmission Date: 20200409
  Serious: Yes (Other)
  Sender: FDA-Public Use
  Company Number: US-BAYER-2020-028364

PATIENT
  Sex: Female

DRUGS (1)
  1. BETASERON [Suspect]
     Active Substance: INTERFERON BETA-1B

REACTIONS (3)
  - Product dose omission [None]
  - Product dose omission [None]
  - Product dose omission [None]

NARRATIVE: CASE EVENT DATE: 20200130
